FAERS Safety Report 14171972 (Version 3)
Quarter: 2017Q4

REPORT INFORMATION
  Report Type: Report from Study
  Country: None (occurrence: BR)
  Receive Date: 20171108
  Receipt Date: 20171226
  Transmission Date: 20180321
  Serious: Yes (Hospitalization, Disabling, Other)
  Sender: FDA-Public Use
  Company Number: BR-ABBVIE-17K-020-2150180-00

PATIENT
  Sex: Male
  Weight: 80 kg

DRUGS (3)
  1. HUMIRA [Suspect]
     Active Substance: ADALIMUMAB
     Dosage: WEEK 2  INDUCTION DOSE
     Route: 058
     Dates: start: 20170801, end: 20170801
  2. HUMIRA [Suspect]
     Active Substance: ADALIMUMAB
     Indication: HIDRADENITIS
     Dosage: WEEK 0 INDUCTION DOSE
     Route: 058
     Dates: start: 20170718, end: 20170718
  3. HUMIRA [Suspect]
     Active Substance: ADALIMUMAB
     Dosage: MAINTENANCE DOSE
     Route: 058
     Dates: start: 201708, end: 201709

REACTIONS (8)
  - Weight decreased [Not Recovered/Not Resolved]
  - Iron deficiency [Recovered/Resolved]
  - Hidradenitis [Recovered/Resolved]
  - Ageusia [Unknown]
  - Asthenia [Unknown]
  - Anaemia [Recovered/Resolved]
  - Hidradenitis [Not Recovered/Not Resolved]
  - Hypophagia [Unknown]

NARRATIVE: CASE EVENT DATE: 2017
